FAERS Safety Report 6786077-7 (Version None)
Quarter: 2010Q2

REPORT INFORMATION
  Report Type: 
  Country: None (occurrence: None)
  Receive Date: 20100623
  Receipt Date: 20100611
  Transmission Date: 20101027
  Serious: Yes (Other)
  Sender: FDA-Public Use
  Company Number: PHHY2010CA36882

PATIENT
  Sex: Male

DRUGS (5)
  1. SANDOSTATIN LAR [Suspect]
     Indication: SMALL INTESTINE CARCINOMA
     Dosage: 30 MG, QMO
     Dates: start: 20080320, end: 20091223
  2. SANDOSTATIN LAR [Suspect]
     Dosage: 40 MG, QMO
  3. SANDOSTATIN LAR [Suspect]
     Dosage: 30 MG, EVERY 4 WEEKS
     Route: 030
     Dates: start: 20100223, end: 20100525
  4. EVEROLIMUS [Suspect]
     Dosage: 10 MG, DAILY
     Route: 048
     Dates: start: 20100517, end: 20100529
  5. LIPITOR [Suspect]

REACTIONS (5)
  - BLISTER [None]
  - GENERALISED OEDEMA [None]
  - MOUTH ULCERATION [None]
  - PRURITUS [None]
  - RASH [None]
